FAERS Safety Report 9639030 (Version 1)
Quarter: 2013Q4

REPORT INFORMATION
  Report Type: Report from Study
  Country: US (occurrence: US)
  Receive Date: 20131022
  Receipt Date: 20131022
  Transmission Date: 20140711
  Serious: No
  Sender: FDA-Public Use
  Company Number: US-ABBVIE-12P-163-0996467-00

PATIENT
  Age: 44 Year
  Sex: Female
  Weight: 68.1 kg

DRUGS (4)
  1. LUPRON DEPOT [Suspect]
     Indication: UTERINE LEIOMYOMA
     Dates: start: 20120828
  2. LUPRON DEPOT [Suspect]
     Indication: MENSTRUATION IRREGULAR
  3. DULERA [Concomitant]
     Indication: ASTHMA
  4. PROVENTIL [Concomitant]
     Indication: ASTHMA
     Route: 055

REACTIONS (2)
  - Abdominal discomfort [Not Recovered/Not Resolved]
  - Dizziness [Not Recovered/Not Resolved]
